FAERS Safety Report 13143376 (Version 3)
Quarter: 2017Q1

REPORT INFORMATION
  Report Type: Spontaneous
  Country: US (occurrence: US)
  Receive Date: 20170124
  Receipt Date: 20170224
  Transmission Date: 20170428
  Serious: Yes (Death, Hospitalization, Other)
  Sender: FDA-Public Use
  Company Number: US-PFIZER INC-2017026178

PATIENT
  Age: 87 Year
  Sex: Female
  Weight: 58.51 kg

DRUGS (11)
  1. ALLOPURINOL. [Concomitant]
     Active Substance: ALLOPURINOL
     Dosage: UNK
  2. ATENOLOL. [Concomitant]
     Active Substance: ATENOLOL
     Indication: HEART RATE ABNORMAL
     Dosage: 50MG, 1/2 TABLET  DAILY
     Route: 048
     Dates: start: 20040602
  3. ATORVASTATIN CALCIUM. [Concomitant]
     Active Substance: ATORVASTATIN CALCIUM
     Indication: BLOOD CHOLESTEROL
     Dosage: 20MG 1 TABLET AT BEDTIME
     Route: 048
     Dates: start: 20160118
  4. REVATIO [Suspect]
     Active Substance: SILDENAFIL CITRATE
     Indication: PULMONARY HYPERTENSION
     Dosage: 20 MG, 3X/DAY
     Route: 048
     Dates: start: 20120315, end: 201702
  5. PANTOPRAZOLE [Concomitant]
     Active Substance: PANTOPRAZOLE SODIUM
     Indication: GASTROOESOPHAGEAL REFLUX DISEASE
     Dosage: 40MG, 1 TABLET DAILY
     Route: 048
     Dates: start: 20120404
  6. GABAPENTIN. [Concomitant]
     Active Substance: GABAPENTIN
     Indication: NEURALGIA
     Dosage: 300MG, TAKE 1 CAPSULE AT BEDTIME
     Route: 048
     Dates: start: 20161006
  7. LISINOPRIL. [Concomitant]
     Active Substance: LISINOPRIL
     Dosage: UNK
  8. DIGOXIN. [Concomitant]
     Active Substance: DIGOXIN
     Indication: HEART RATE ABNORMAL
     Dosage: 125 UG, DAILY
     Route: 048
     Dates: start: 20130122
  9. FUROSEMIDE. [Concomitant]
     Active Substance: FUROSEMIDE
     Indication: CARDIAC FAILURE
     Dosage: 40MG, 2 TABLETS TWICE DAILY
     Route: 048
     Dates: start: 20091222
  10. WARFARIN [Concomitant]
     Active Substance: WARFARIN
     Indication: AORTIC VALVE REPLACEMENT
     Dosage: 1MG ON FRIDAYS AND 2 MG THE OTHER 6 DAYS OF THE WEEK
     Route: 048
     Dates: start: 20161121
  11. POTASSIUM [Concomitant]
     Active Substance: POTASSIUM
     Indication: HYPOKALAEMIA
     Dosage: 10MEQ 2 CAPSULES DAILY BY MOUTH
     Route: 048
     Dates: start: 20161216

REACTIONS (9)
  - Cardiac failure [Unknown]
  - Gastrointestinal haemorrhage [Recovered/Resolved]
  - Pneumonia [Unknown]
  - Pleural effusion [Unknown]
  - Death [Fatal]
  - Dyspnoea [Unknown]
  - Aortic stenosis [Unknown]
  - Fatigue [Unknown]
  - Atelectasis [Unknown]

NARRATIVE: CASE EVENT DATE: 2016
